FAERS Safety Report 6745616-2 (Version None)
Quarter: 2010Q2

REPORT INFORMATION
  Report Type: 
  Country: None (occurrence: None)
  Receive Date: 20100528
  Receipt Date: 20100518
  Transmission Date: 20101027
  Serious: Yes (Death)
  Sender: FDA-Public Use
  Company Number: AU-WYE-H15285810

PATIENT
  Age: 47 Year
  Sex: Female

DRUGS (4)
  1. EFFEXOR [Suspect]
     Dosage: UNKNOWN
  2. AMITRIPTYLINE [Interacting]
  3. DIAZEPAM [Interacting]
  4. FLUOXETINE [Interacting]

REACTIONS (3)
  - DRUG INTERACTION [None]
  - DRUG TOXICITY [None]
  - SEROTONIN SYNDROME [None]
